FAERS Safety Report 4320708-6 (Version None)
Quarter: 2004Q1

REPORT INFORMATION
  Report Type: 
  Country: None (occurrence: None)
  Receive Date: 20040318
  Receipt Date: 20040303
  Transmission Date: 20041129
  Serious: Yes (Hospitalization)
  Sender: FDA-Public Use
  Company Number: CIP04000228

PATIENT
  Age: 59 Year
  Sex: Female

DRUGS (6)
  1. DIDRONEL [Suspect]
     Indication: OSTEOPOROSIS
     Dosage: 200 MG, INTERMITTENT CYCLIC, ORAL; SEE IMAGE
     Route: 048
     Dates: start: 20010522, end: 20030309
  2. DIDRONEL [Suspect]
     Indication: OSTEOPOROSIS
     Dosage: 200 MG, INTERMITTENT CYCLIC, ORAL; SEE IMAGE
     Route: 048
     Dates: start: 20030523, end: 20030605
  3. DIDRONEL [Suspect]
     Indication: OSTEOPOROSIS
     Dosage: 200 MG, INTERMITTENT CYCLIC, ORAL; SEE IMAGE
     Route: 048
     Dates: start: 20031120, end: 20031203
  4. GLAKAY (MENATETRENONE) [Concomitant]
  5. ROCALTROL [Concomitant]
  6. MEVALOTIN (PRAVASTATIN SODUIM) [Concomitant]

REACTIONS (1)
  - COLITIS ISCHAEMIC [None]
